FAERS Safety Report 13602851 (Version 1)
Quarter: 2017Q2

REPORT INFORMATION
  Report Type: Spontaneous
  Country: US (occurrence: US)
  Receive Date: 20170601
  Receipt Date: 20170601
  Transmission Date: 20170830
  Serious: Yes (Other)
  Sender: FDA-Public Use
  Company Number: US-BEH-199505113BW

PATIENT
  Age: 12 Year
  Sex: Male

DRUGS (1)
  1. MONOCLATE-P [Suspect]
     Active Substance: ANTIHEMOPHILIC FACTOR HUMAN
     Indication: FACTOR VIII DEFICIENCY
     Route: 042
     Dates: start: 19951015, end: 19951016

REACTIONS (4)
  - Chills [Unknown]
  - Tremor [Unknown]
  - Rash [Unknown]
  - Vomiting [Unknown]
